FAERS Safety Report 8590126 (Version 11)
Quarter: 2015Q2

REPORT INFORMATION
  Report Type: Report from Study
  Country: CA (occurrence: CA)
  Receive Date: 20120601
  Receipt Date: 20150605
  Transmission Date: 20150821
  Serious: Yes (Hospitalization, Other)
  Sender: FDA-Public Use
  Company Number: PHHY2012CA029388

PATIENT
  Age: 48 Year
  Sex: Male

DRUGS (1)
  1. SANDOSTATIN LAR DEPOT [Suspect]
     Active Substance: OCTREOTIDE ACETATE
     Indication: NEUROENDOCRINE TUMOUR
     Dosage: 30 MG, QMO (EVERY 4 WEEKS)
     Route: 030
     Dates: start: 20110614

REACTIONS (7)
  - Blood pressure increased [Unknown]
  - Liver abscess [Recovering/Resolving]
  - Pyrexia [Recovered/Resolved]
  - Abdominal abscess [Unknown]
  - Malignant neoplasm progression [Unknown]
  - Infection [Unknown]
  - Post procedural infection [Unknown]

NARRATIVE: CASE EVENT DATE: 20140517
